FAERS Safety Report 9945673 (Version 1)
Quarter: 2014Q1

REPORT INFORMATION
  Report Type: Report from Study
  Country: US (occurrence: US)
  Receive Date: 20140303
  Receipt Date: 20140303
  Transmission Date: 20141002
  Serious: No
  Sender: FDA-Public Use
  Company Number: US-ABBVIE-13P-163-1050930-00

PATIENT
  Age: 53 Year
  Sex: Male

DRUGS (11)
  1. HUMIRA [Suspect]
     Indication: CROHN^S DISEASE
     Dates: start: 20130111, end: 20130111
  2. HUMIRA [Suspect]
     Dates: start: 20130125, end: 20130125
  3. HUMIRA [Suspect]
     Dates: start: 20130208
  4. NORVASC [Concomitant]
     Indication: HYPERTENSION
  5. VYVANSE [Concomitant]
     Indication: ANXIETY
  6. VYVANSE [Concomitant]
     Indication: DEPRESSION
  7. CYMBALTA [Concomitant]
     Indication: ANXIETY
  8. CYMBALTA [Concomitant]
     Indication: DEPRESSION
  9. PRILOSEC [Concomitant]
     Indication: GASTROOESOPHAGEAL REFLUX DISEASE
  10. BENICAR [Concomitant]
     Indication: HYPERTENSION
  11. VALSARTAN [Concomitant]
     Indication: HYPERTENSION
     Dosage: 160/25 MG

REACTIONS (3)
  - Decreased appetite [Not Recovered/Not Resolved]
  - Weight decreased [Not Recovered/Not Resolved]
  - Drug ineffective [Not Recovered/Not Resolved]
